FAERS Safety Report 5870574-2 (Version None)
Quarter: 2008Q3

REPORT INFORMATION
  Report Type: 
  Country: None (occurrence: None)
  Receive Date: 20080904
  Receipt Date: 20080829
  Transmission Date: 20090109
  Serious: Yes (Life-Threatening, Hospitalization)
  Sender: FDA-Public Use
  Company Number: A0727964A

PATIENT
  Age: 71 Year
  Sex: Female
  Weight: 64.5 kg

DRUGS (3)
  1. ROSIGLITAZONE [Suspect]
     Dosage: 2MG PER DAY
     Route: 048
     Dates: start: 20080121
  2. AMLODIPINE [Concomitant]
     Indication: HYPERTENSION
     Dosage: 5MG PER DAY
     Route: 048
     Dates: start: 20071218
  3. METFORMIN HCL [Concomitant]
     Dosage: 500MG PER DAY
     Route: 048
     Dates: start: 20080111

REACTIONS (7)
  - CARDIAC FAILURE CONGESTIVE [None]
  - CHEST PAIN [None]
  - DYSPNOEA [None]
  - DYSPNOEA PAROXYSMAL NOCTURNAL [None]
  - MYOCARDIAL INFARCTION [None]
  - ORTHOPNOEA [None]
  - PSORIASIS [None]
